FAERS Safety Report 9901260 (Version 2)
Quarter: 2014Q1

REPORT INFORMATION
  Report Type: Spontaneous
  Country: CO (occurrence: CO)
  Receive Date: 20140217
  Receipt Date: 20140221
  Transmission Date: 20141002
  Serious: Yes (Other)
  Sender: FDA-Public Use
  Company Number: CO-009507513-1402COL007783

PATIENT
  Age: 40 Year
  Sex: Female

DRUGS (1)
  1. IMPLANON NXT [Suspect]
     Indication: CONTRACEPTION
     Dosage: TRIENIAL, TOTAL DAILY DOSE 60-70 MICROGRAM/DAY
     Route: 059
     Dates: start: 20130727, end: 20140114

REACTIONS (7)
  - Abortion spontaneous [Unknown]
  - Haemorrhage [Unknown]
  - Unintended pregnancy [Recovered/Resolved]
  - Abdominal pain upper [Unknown]
  - Vaginal infection [Unknown]
  - Vulvovaginitis [Unknown]
  - Menstruation delayed [Unknown]
